FAERS Safety Report 7627992 (Version 2)
Quarter: 2012Q4

REPORT INFORMATION
  Report Type: 
  Country: US (occurrence: US)
  Receive Date: 20101013
  Receipt Date: 20121112
  Transmission Date: 20130627
  Serious: No
  Sender: FDA-Public Use
  Company Number: US-ASTRAZENECA-2010SE38527

PATIENT
  Age: 19 Year
  Sex: Male
  Weight: 61.2 kg

DRUGS (1)
  1. SYMBICORT PMDI [Suspect]
     Indication: ASTHMA
     Dosage: 80/4.5 MCG, FREQUENCY UNKNOWN
     Route: 055

REACTIONS (4)
  - Asthma [Unknown]
  - Wheezing [Unknown]
  - Adverse event [Unknown]
  - Intentional drug misuse [Unknown]
